FAERS Safety Report 10485619 (Version 1)
Quarter: 2014Q4

REPORT INFORMATION
  Report Type: Spontaneous
  Country: RU (occurrence: RU)
  Receive Date: 20141001
  Receipt Date: 20141001
  Transmission Date: 20150528
  Serious: Yes (Death, Hospitalization)
  Sender: FDA-Public Use
  Company Number: RU-ACTELION-A-CH2014-105250

PATIENT
  Age: 13 Year
  Sex: Female
  Weight: 26 kg

DRUGS (7)
  1. DIGOXIN. [Concomitant]
     Active Substance: DIGOXIN
     Dosage: UNK
     Dates: start: 2002, end: 20140627
  2. FUROSEMID [Concomitant]
     Active Substance: FUROSEMIDE
     Dosage: UNK
     Dates: start: 2002, end: 20140627
  3. SILDENAFIL. [Concomitant]
     Active Substance: SILDENAFIL
     Dosage: UNK
     Dates: start: 200812, end: 20140627
  4. PANANGIN [Concomitant]
     Dosage: UNK
     Dates: start: 2002, end: 20140627
  5. TRACLEER [Suspect]
     Active Substance: BOSENTAN\BOSENTAN MONOHYDRATE
     Indication: PULMONARY ARTERIAL HYPERTENSION
     Dosage: 93.75 MG, BID
     Route: 048
     Dates: start: 2012
  6. TRACLEER [Suspect]
     Active Substance: BOSENTAN\BOSENTAN MONOHYDRATE
     Dosage: 62.5 MG, BID
     Route: 048
     Dates: start: 201112
  7. VEROSPIRON [Concomitant]
     Active Substance: SPIRONOLACTONE
     Dosage: UNK
     Dates: start: 2002, end: 20140627

REACTIONS (3)
  - Cardiac failure [Fatal]
  - Upper respiratory tract infection [Not Recovered/Not Resolved]
  - Cardiac pacemaker evaluation [Unknown]

NARRATIVE: CASE EVENT DATE: 20140617
